FAERS Safety Report 9010877 (Version 3)
Quarter: 2013Q4

REPORT INFORMATION
  Report Type: Report from Study
  Country: FR (occurrence: FR)
  Receive Date: 20130109
  Receipt Date: 20131118
  Transmission Date: 20140711
  Serious: Yes (Hospitalization, Other)
  Sender: FDA-Public Use
  Company Number: FR-CELGENEUS-056-21880-13010393

PATIENT
  Age: 59 Year
  Sex: Female

DRUGS (12)
  1. REVLIMID [Suspect]
     Indication: PLASMA CELL MYELOMA
     Route: 048
     Dates: start: 20110524
  2. REVLIMID [Suspect]
     Route: 048
     Dates: start: 20121005, end: 20121128
  3. BORTEZOMIB [Suspect]
     Indication: PLASMA CELL MYELOMA
     Route: 065
     Dates: start: 20110524
  4. BORTEZOMIB [Suspect]
     Route: 065
     Dates: end: 20111201
  5. DEXAMETHASONE [Suspect]
     Indication: PLASMA CELL MYELOMA
     Route: 065
     Dates: start: 20110524
  6. DEXAMETHASONE [Suspect]
     Route: 065
     Dates: end: 20111202
  7. ZOMETA [Concomitant]
     Indication: PROPHYLAXIS
     Route: 041
     Dates: start: 20110426
  8. XANAX [Concomitant]
     Indication: ANXIOLYTIC THERAPY
     Dosage: .75 MILLIGRAM
     Route: 048
     Dates: start: 20110421
  9. BACTRIM [Concomitant]
     Indication: PROPHYLAXIS
     Route: 048
     Dates: start: 20110601
  10. LEDERFOLINE [Concomitant]
     Indication: PROPHYLAXIS
     Route: 048
     Dates: start: 20110601
  11. ZELITREX [Concomitant]
     Indication: PROPHYLAXIS
     Dosage: 250 MILLIGRAM
     Route: 048
     Dates: start: 20110601
  12. INNOHEP [Concomitant]
     Indication: THROMBOSIS PROPHYLAXIS
     Dosage: 4500 IU (INTERNATIONAL UNIT)
     Route: 058
     Dates: start: 20110601

REACTIONS (1)
  - Invasive ductal breast carcinoma [Recovered/Resolved with Sequelae]
